FAERS Safety Report 25106346 (Version 1)
Quarter: 2025Q1

REPORT INFORMATION
  Report Type: Spontaneous
  Country: US (occurrence: US)
  Receive Date: 20250321
  Receipt Date: 20250321
  Transmission Date: 20250409
  Serious: No
  Sender: EPIC PHARM
  Company Number: US-EPICPHARMA-US-2025EPCSPO00284

PATIENT
  Age: 59 Year
  Sex: Male
  Weight: 70.8 kg

DRUGS (9)
  1. RIFAMPIN [Suspect]
     Active Substance: RIFAMPIN
     Indication: Product used for unknown indication
     Route: 065
  2. ETHAMBUTOL HYDROCHLORIDE [Suspect]
     Active Substance: ETHAMBUTOL HYDROCHLORIDE
     Indication: Product used for unknown indication
     Route: 065
  3. CLOFAZIMINE [Concomitant]
     Active Substance: CLOFAZIMINE
     Route: 048
     Dates: start: 20250108, end: 20250301
  4. ALBUTEROL [Concomitant]
     Active Substance: ALBUTEROL
     Indication: Bronchiectasis
     Route: 065
     Dates: end: 20250301
  5. AMIKACIN [Concomitant]
     Active Substance: AMIKACIN
     Route: 065
     Dates: start: 20250116, end: 20250301
  6. AZITHROMYCIN [Concomitant]
     Active Substance: AZITHROMYCIN
     Route: 065
     Dates: start: 20240405, end: 20250301
  7. SODIUM CHLORIDE [Concomitant]
     Active Substance: SODIUM CHLORIDE
     Indication: Bronchiectasis
     Route: 065
     Dates: end: 20250301
  8. CEFPODOXIME [Concomitant]
     Active Substance: CEFPODOXIME
     Indication: Nausea
     Route: 065
  9. CEFPODOXIME [Concomitant]
     Active Substance: CEFPODOXIME
     Indication: Vomiting

REACTIONS (2)
  - Gastrointestinal disorder [Unknown]
  - Treatment noncompliance [Unknown]
